FAERS Safety Report 5109818-3 (Version None)
Quarter: 2006Q3

REPORT INFORMATION
  Report Type: 
  Country: None (occurrence: None)
  Receive Date: 20060918
  Receipt Date: 20060918
  Transmission Date: 20061208
  Serious: Yes (Death)
  Sender: FDA-Public Use
  Company Number: None

PATIENT
  Age: 36 Year
  Sex: Female
  Weight: 78.0187 kg

DRUGS (2)
  1. LOVENOX [Suspect]
     Indication: ABORTION SPONTANEOUS
     Dosage: 40 MG  DAILY SQ
     Route: 058
     Dates: start: 20060701, end: 20060807
  2. LOVENOX [Suspect]
     Indication: GENE MUTATION
     Dosage: 40 MG  DAILY SQ
     Route: 058
     Dates: start: 20060701, end: 20060807

REACTIONS (4)
  - ANAEMIA [None]
  - DRUG EXPOSURE DURING PREGNANCY [None]
  - INTRA-UTERINE DEATH [None]
  - POST PROCEDURAL HAEMORRHAGE [None]
